FAERS Safety Report 7068703-0 (Version None)
Quarter: 2010Q4

REPORT INFORMATION
  Report Type: 
  Country: None (occurrence: None)
  Receive Date: 20101020
  Receipt Date: 20101011
  Transmission Date: 20110411
  Serious: Yes (Other)
  Sender: FDA-Public Use
  Company Number: 2010EN000285

PATIENT
  Age: 29 Month
  Sex: Male

DRUGS (12)
  1. ADAGEN [Suspect]
     Indication: COMBINED IMMUNODEFICIENCY
     Dosage: QW;IM ; 375 IU;QW;IM ; IM
     Route: 030
     Dates: start: 20100810, end: 20100908
  2. ADAGEN [Suspect]
     Indication: COMBINED IMMUNODEFICIENCY
     Dosage: QW;IM ; 375 IU;QW;IM ; IM
     Route: 030
     Dates: start: 20100909, end: 20101006
  3. ADAGEN [Suspect]
     Indication: COMBINED IMMUNODEFICIENCY
     Dosage: QW;IM ; 375 IU;QW;IM ; IM
     Route: 030
     Dates: start: 20101007
  4. ADAGEN [Suspect]
  5. ADAGEN [Suspect]
  6. NEBUPENT [Concomitant]
  7. HEVIRAN [Concomitant]
  8. ORUNGAL [Concomitant]
  9. FUNGIZONE [Concomitant]
  10. EUTENOL [Concomitant]
  11. AMOXICILLIN [Concomitant]
  12. IMMUNOGLOBULIN HUMAN NORMAL [Concomitant]

REACTIONS (4)
  - EOSINOPHILIA [None]
  - IMMEDIATE POST-INJECTION REACTION [None]
  - RASH MACULO-PAPULAR [None]
  - RASH PRURITIC [None]
